FAERS Safety Report 7814930-1 (Version None)
Quarter: 2011Q4

REPORT INFORMATION
  Report Type: 
  Country: None (occurrence: None)
  Receive Date: 20111012
  Receipt Date: 20110922
  Transmission Date: 20120403
  Serious: Yes (Other)
  Sender: FDA-Public Use
  Company Number: 20110672

PATIENT
  Age: 57 Year
  Sex: Male

DRUGS (2)
  1. BETAMETHASONE SODIUM PHOSPHATE AND BETAMETHASONE ACETATE [Suspect]
     Indication: TENDONITIS
     Dosage: INTRA-ARTICULAR
     Route: 014
     Dates: start: 20110916, end: 20110916
  2. CRESTOR [Concomitant]

REACTIONS (8)
  - PAIN OF SKIN [None]
  - REACTION TO PRESERVATIVES [None]
  - FURUNCLE [None]
  - NO THERAPEUTIC RESPONSE [None]
  - PRURITUS [None]
  - IMPAIRED WORK ABILITY [None]
  - RASH [None]
  - IMPAIRED DRIVING ABILITY [None]
